FAERS Safety Report 9347815 (Version 1)
Quarter: 2013Q2

REPORT INFORMATION
  Report Type: Spontaneous
  Country: US (occurrence: US)
  Receive Date: 20130614
  Receipt Date: 20130614
  Transmission Date: 20140414
  Serious: Yes (Other)
  Sender: FDA-Public Use
  Company Number: US-PFIZER INC-2013173862

PATIENT
  Age: 68 Year
  Sex: Female

DRUGS (2)
  1. TORISEL [Suspect]
     Indication: METASTATIC RENAL CELL CARCINOMA
     Dosage: UNK
     Dates: start: 20130104
  2. TORISEL [Suspect]
     Indication: MALIGNANT URINARY TRACT NEOPLASM

REACTIONS (8)
  - Anaemia [Unknown]
  - Disease progression [Unknown]
  - Metastatic renal cell carcinoma [Unknown]
  - Malignant urinary tract neoplasm [Unknown]
  - Mucosal inflammation [Unknown]
  - Weight decreased [Unknown]
  - Back pain [Unknown]
  - Fatigue [Unknown]
